FAERS Safety Report 7753907-1 (Version None)
Quarter: 2011Q3

REPORT INFORMATION
  Report Type: 
  Country: None (occurrence: None)
  Receive Date: 20110915
  Receipt Date: 20110902
  Transmission Date: 20111222
  Serious: No
  Sender: FDA-Public Use
  Company Number: US-B.I. PHARMACEUTICALS,INC./RIDGEFIELD-2011-BP-21392BP

PATIENT
  Age: 71 Year
  Sex: Female

DRUGS (6)
  1. CELEXA [Concomitant]
     Indication: PANIC DISORDER
     Dosage: 5 MG
     Route: 048
  2. BONIVA [Concomitant]
     Indication: PROPHYLAXIS
     Dosage: 150 MG
     Route: 048
  3. DIGOXIN [Concomitant]
     Indication: ATRIAL FIBRILLATION
     Dosage: 12.5 MG
     Route: 048
  4. PRADAXA [Suspect]
     Indication: ATRIAL FIBRILLATION
     Dosage: 300 MG
     Route: 048
     Dates: start: 20110101
  5. LOVAZA [Concomitant]
     Indication: BLOOD CHOLESTEROL INCREASED
     Dosage: 4 G
     Route: 048
  6. AMBIEN [Concomitant]
     Dosage: 5 MG
     Route: 048

REACTIONS (3)
  - SENSATION OF HEAVINESS [None]
  - LIMB DISCOMFORT [None]
  - ARTHRALGIA [None]
